FAERS Safety Report 4382764-9 (Version None)
Quarter: 2004Q2

REPORT INFORMATION
  Report Type: 
  Country: None (occurrence: None)
  Receive Date: 20040603
  Receipt Date: 20040317
  Transmission Date: 20050107
  Serious: Yes (Death)
  Sender: FDA-Public Use
  Company Number: 200412021US

PATIENT
  Age: 62 Year
  Sex: Male
  Weight: 74 kg

DRUGS (4)
  1. LOVENOX [Suspect]
     Dosage: 60 MG BID SC
     Route: 058
     Dates: start: 20040120, end: 20040123
  2. ASPIRIN [Concomitant]
  3. ATENOLOL [Concomitant]
  4. HYDROCHLOROTHIAZIDE [Concomitant]

REACTIONS (2)
  - CEREBRAL HAEMORRHAGE [None]
  - CONFUSIONAL STATE [None]
